FAERS Safety Report 11629670 (Version 1)
Quarter: 2015Q4

REPORT INFORMATION
  Report Type: Spontaneous
  Country: US (occurrence: US)
  Receive Date: 20151014
  Receipt Date: 20151014
  Transmission Date: 20160304
  Serious: No
  Sender: FDA-Public Use
  Company Number: US-009507513-1510USA001838

PATIENT
  Age: 23 Year
  Sex: Female
  Weight: 62.59 kg

DRUGS (1)
  1. NUVARING [Suspect]
     Active Substance: ETHINYL ESTRADIOL\ETONOGESTREL
     Dosage: 1 RING / 3 WEEKS IN, 1 WEEK OUT
     Route: 067
     Dates: start: 2013

REACTIONS (1)
  - Inappropriate schedule of drug administration [Unknown]
